FAERS Safety Report 21896215 (Version 1)
Quarter: 2023Q1

REPORT INFORMATION
  Report Type: Spontaneous
  Country: FR (occurrence: FR)
  Receive Date: 20230123
  Receipt Date: 20230123
  Transmission Date: 20230418
  Serious: Yes (Death)
  Sender: FDA-Public Use
  Company Number: FR-MLMSERVICE-20230112-4031036-3

PATIENT
  Age: 91 Year
  Sex: Male

DRUGS (3)
  1. DEXAMETHASONE [Suspect]
     Active Substance: DEXAMETHASONE
     Indication: COVID-19
     Route: 065
     Dates: start: 20210916
  2. OXYGEN [Concomitant]
     Active Substance: OXYGEN
     Indication: COVID-19
     Dosage: WITH A MASK
     Route: 055
     Dates: start: 20210916
  3. OXYGEN [Concomitant]
     Active Substance: OXYGEN
     Dosage: WITH A MASK
     Route: 055
     Dates: start: 20210918

REACTIONS (3)
  - Pseudomonas infection [Fatal]
  - Pasteurella infection [Fatal]
  - Pneumonia bacterial [Fatal]

NARRATIVE: CASE EVENT DATE: 20210901
